FAERS Safety Report 7205675-X (Version None)
Quarter: 2010Q4

REPORT INFORMATION
  Report Type: 
  Country: None (occurrence: None)
  Receive Date: 20101231
  Receipt Date: 20101222
  Transmission Date: 20110411
  Serious: Yes (Other)
  Sender: FDA-Public Use
  Company Number: JP-PFIZER INC-2010170521

PATIENT
  Age: 66 Year
  Sex: Male

DRUGS (12)
  1. CELECOX [Suspect]
     Indication: RHEUMATOID ARTHRITIS
     Dosage: 100 MG, 2X/DAY
     Route: 048
     Dates: start: 20100223, end: 20100317
  2. ACTOS [Interacting]
     Indication: TYPE 2 DIABETES MELLITUS
     Dosage: 30 MG, 1X/DAY
     Route: 048
  3. WARFARIN [Interacting]
     Indication: ATRIAL FIBRILLATION
     Dosage: 2 MG, 1X/DAY
     Route: 048
  4. HERBESSER R [Concomitant]
     Indication: HYPERTENSION
     Dosage: UNK
  5. ASPIRIN [Concomitant]
     Indication: ATRIAL FIBRILLATION
     Dosage: UNK
  6. DIGOSIN [Concomitant]
     Indication: ATRIAL FIBRILLATION
     Dosage: UNK
  7. GASTER [Concomitant]
     Indication: GASTROINTESTINAL MUCOSAL DISORDER
     Dosage: 20 MG, UNK
  8. BASEN [Concomitant]
     Indication: TYPE 2 DIABETES MELLITUS
     Dosage: UNK
  9. ALIMTA [Concomitant]
     Indication: NON-SMALL CELL LUNG CANCER
     Dosage: UNK
     Dates: start: 20100304
  10. CARBOPLATIN [Concomitant]
     Indication: NON-SMALL CELL LUNG CANCER
     Dosage: UNK
     Dates: start: 20100304
  11. METHYCOBAL [Concomitant]
     Indication: NON-SMALL CELL LUNG CANCER
     Dosage: UNK
     Dates: start: 20100225
  12. PANVITAN [Concomitant]
     Indication: NON-SMALL CELL LUNG CANCER
     Dosage: UNK
     Dates: start: 20100225

REACTIONS (2)
  - DRUG INTERACTION [None]
  - POLLAKIURIA [None]
